FAERS Safety Report 4462812-8 (Version None)
Quarter: 2004Q3

REPORT INFORMATION
  Report Type: 
  Country: None (occurrence: None)
  Receive Date: 20040927
  Receipt Date: 20040913
  Transmission Date: 20050211
  Serious: Yes (Other)
  Sender: FDA-Public Use
  Company Number: HQWYE036215SEP04

PATIENT
  Sex: Male

DRUGS (2)
  1. EFFEXOR XR [Suspect]
     Dosage: 275 MG 1X PER 1 DAY WEANED OFF VERY SLOWLY
     Dates: start: 20020101, end: 20040801
  2. EFFEXOR XR [Suspect]
     Dosage: 275 MG 1X PER 1 DAY WEANED OFF VERY SLOWLY
     Dates: start: 20040801, end: 20040901

REACTIONS (16)
  - ANGER [None]
  - COLD SWEAT [None]
  - DIZZINESS [None]
  - DRUG WITHDRAWAL SYNDROME [None]
  - EYE MOVEMENT DISORDER [None]
  - HEADACHE [None]
  - HOMICIDAL IDEATION [None]
  - IMPATIENCE [None]
  - IRRITABILITY [None]
  - LOSS OF CONSCIOUSNESS [None]
  - NERVOUS SYSTEM DISORDER [None]
  - NIGHT SWEATS [None]
  - NONSPECIFIC REACTION [None]
  - PALPITATIONS [None]
  - PARAESTHESIA [None]
  - STOMACH DISCOMFORT [None]
